FAERS Safety Report 15772519 (Version 1)
Quarter: 2018Q4

REPORT INFORMATION
  Report Type: Spontaneous
  Country: US (occurrence: US)
  Receive Date: 20181228
  Receipt Date: 20181228
  Transmission Date: 20190205
  Serious: No
  Sender: FDA-Public Use
  Company Number: US-SA-2018SA394772

PATIENT
  Sex: Male

DRUGS (2)
  1. ALLEGRA [Suspect]
     Active Substance: FEXOFENADINE HYDROCHLORIDE
     Indication: RASH
  2. OXYMETAZOLINE HYDROCHLORIDE. [Interacting]
     Active Substance: OXYMETAZOLINE HYDROCHLORIDE

REACTIONS (1)
  - Drug interaction [Unknown]
